FAERS Safety Report 5432042-1 (Version None)
Quarter: 2007Q3

REPORT INFORMATION
  Report Type: 
  Country: None (occurrence: None)
  Receive Date: 20070830
  Receipt Date: 20070813
  Transmission Date: 20080115
  Serious: No
  Sender: FDA-Public Use
  Company Number: US-BOEHRINGER INGELHEIM PHARMACEUTICALS, INC.-2007-BP-19147BP

PATIENT
  Sex: Female

DRUGS (5)
  1. SPIRIVA [Suspect]
     Indication: CHRONIC OBSTRUCTIVE PULMONARY DISEASE
     Route: 055
     Dates: start: 20070713
  2. CELEBREX [Concomitant]
     Route: 048
  3. PROVIGIL [Concomitant]
     Route: 048
  4. DETROL LA [Concomitant]
     Route: 048
  5. ALLEGRA [Concomitant]

REACTIONS (2)
  - PRODUCTIVE COUGH [None]
  - SINUS CONGESTION [None]
